FAERS Safety Report 19034044 (Version 1)
Quarter: 2021Q1

REPORT INFORMATION
  Report Type: Spontaneous
  Country: DE (occurrence: DE)
  Receive Date: 20210319
  Receipt Date: 20210319
  Transmission Date: 20210420
  Serious: Yes (Death)
  Sender: FDA-Public Use
  Company Number: DE-ROCHE-2793895

PATIENT
  Age: 83 Year
  Sex: Female
  Weight: 65 kg

DRUGS (4)
  1. ACTILYSE [Suspect]
     Active Substance: ALTEPLASE
     Indication: COORDINATION ABNORMAL
  2. ACTILYSE [Suspect]
     Active Substance: ALTEPLASE
     Indication: BRAIN STEM STROKE
  3. ACTILYSE [Suspect]
     Active Substance: ALTEPLASE
     Indication: APHASIA
  4. ACTILYSE [Suspect]
     Active Substance: ALTEPLASE
     Indication: CONFUSIONAL STATE
     Dosage: ADMINISTERED AT 12:55 PM
     Route: 042

REACTIONS (2)
  - Brain stem syndrome [Fatal]
  - Cerebral haemorrhage [Fatal]

NARRATIVE: CASE EVENT DATE: 20210301
